FAERS Safety Report 4335121-5 (Version None)
Quarter: 2004Q2

REPORT INFORMATION
  Report Type: 
  Country: None (occurrence: None)
  Receive Date: 20040408
  Receipt Date: 20040311
  Transmission Date: 20050107
  Serious: Yes (Hospitalization)
  Sender: FDA-Public Use
  Company Number: PHBS2004BR03499

PATIENT
  Age: 41 Year
  Sex: Female
  Weight: 60 kg

DRUGS (3)
  1. ZELMAC [Suspect]
     Indication: IRRITABLE BOWEL SYNDROME
     Dosage: 6 MG, BID
     Route: 048
     Dates: start: 20030624, end: 20031119
  2. MINERAL OIL EMULSION [Concomitant]
  3. SENE TEA [Concomitant]

REACTIONS (11)
  - ABDOMINAL ADHESIONS [None]
  - ABDOMINAL PAIN [None]
  - CONSTIPATION [None]
  - DRUG INEFFECTIVE [None]
  - ENDOMETRIOSIS [None]
  - FAECALOMA [None]
  - INTESTINAL OBSTRUCTION [None]
  - NERVOUSNESS [None]
  - PYREXIA [None]
  - SMALL INTESTINE OPERATION [None]
  - WEIGHT DECREASED [None]
